FAERS Safety Report 11349720 (Version 2)
Quarter: 2015Q3

REPORT INFORMATION
  Report Type: Report from Study
  Country: CN (occurrence: CN)
  Receive Date: 20150807
  Receipt Date: 20150811
  Transmission Date: 20151125
  Serious: Yes (Death)
  Sender: FDA-Public Use
  Company Number: CN-BRISTOL-MYERS SQUIBB COMPANY-BMS-2015-050632

PATIENT
  Sex: Male

DRUGS (1)
  1. CETUXIMAB [Suspect]
     Active Substance: CETUXIMAB
     Indication: COLORECTAL CANCER
     Dosage: 1 DF, QWK
     Route: 065

REACTIONS (7)
  - Anaemia [Fatal]
  - Blood albumin decreased [Fatal]
  - Mood altered [Unknown]
  - Malignant neoplasm progression [Fatal]
  - Appetite disorder [Unknown]
  - Cardiac failure [Fatal]
  - Bone marrow failure [Fatal]
